FAERS Safety Report 12907202 (Version 1)
Quarter: 2016Q4

REPORT INFORMATION
  Report Type: Spontaneous
  Country: FR (occurrence: FR)
  Receive Date: 20161103
  Receipt Date: 20161103
  Transmission Date: 20170207
  Serious: Yes (Other)
  Sender: FDA-Public Use
  Company Number: FR-SA-2016SA198211

PATIENT
  Age: 56 Year
  Sex: Female

DRUGS (4)
  1. TAXOTERE [Suspect]
     Active Substance: DOCETAXEL
     Indication: BREAST CANCER FEMALE
     Route: 042
     Dates: start: 20160324, end: 20160324
  2. METHYLPREDNISOLONE. [Concomitant]
     Active Substance: METHYLPREDNISOLONE
     Route: 042
     Dates: start: 20160324, end: 20160324
  3. CALCIUM ACETATE. [Concomitant]
     Active Substance: CALCIUM ACETATE
     Route: 048
  4. ZOPHREN [Concomitant]
     Active Substance: ONDANSETRON
     Dosage: DOSE:2 MILLIGRAM(S)/MILLILITRE
     Route: 042
     Dates: start: 20160324, end: 20160324

REACTIONS (4)
  - Alopecia [Recovered/Resolved]
  - Rash [Recovered/Resolved]
  - Dermal cyst [Recovered/Resolved]
  - Pruritus [Recovered/Resolved]

NARRATIVE: CASE EVENT DATE: 20160329
